FAERS Safety Report 8852168 (Version 2)
Quarter: 2012Q4

REPORT INFORMATION
  Report Type: 
  Country: JP (occurrence: JP)
  Receive Date: 20121022
  Receipt Date: 20121109
  Transmission Date: 20130627
  Serious: Yes (Life-Threatening)
  Sender: FDA-Public Use
  Company Number: JP-PFIZER INC-2012261930

PATIENT
  Age: 63 Year
  Sex: Male

DRUGS (11)
  1. MS CONTIN [Suspect]
     Indication: CANCER PAIN
     Dosage: 10 mg, 2x/day
     Route: 048
     Dates: start: 20121002, end: 20121004
  2. CALTAN [Concomitant]
     Dosage: UNK
  3. ONE-ALPHA [Concomitant]
     Dosage: UNK
  4. GASTER [Concomitant]
     Dosage: UNK
  5. ALLOZYM [Concomitant]
     Dosage: UNK
  6. ZOPICOOL [Concomitant]
     Dosage: UNK
  7. REMITCH [Concomitant]
     Dosage: UNK
  8. FOSRENOL [Concomitant]
     Dosage: UNK
  9. OXAROL [Concomitant]
     Dosage: UNK
     Dates: start: 20121002, end: 20121013
  10. NESP [Concomitant]
     Dosage: UNK
     Dates: start: 20121002, end: 20121009
  11. FESIN [Concomitant]
     Dosage: UNK
     Dates: start: 20121002, end: 20121009

REACTIONS (1)
  - Hypoglycaemia [Not Recovered/Not Resolved]
